FAERS Safety Report 5870764-9 (Version None)
Quarter: 2008Q3

REPORT INFORMATION
  Report Type: 
  Country: None (occurrence: None)
  Receive Date: 20080904
  Receipt Date: 20080901
  Transmission Date: 20090109
  Serious: Yes (Death)
  Sender: FDA-Public Use
  Company Number: JP-EISAI MEDICAL RESEARCH-E2020-03175-SPO-JP

PATIENT
  Age: 78 Year
  Sex: Male
  Weight: 53 kg

DRUGS (2)
  1. ARICEPT [Suspect]
     Indication: DEMENTIA ALZHEIMER'S TYPE
     Route: 048
     Dates: start: 20071005
  2. GRAMALIL [Concomitant]
     Dates: start: 20071030

REACTIONS (1)
  - SUDDEN DEATH [None]
